FAERS Safety Report 5602741-7 (Version None)
Quarter: 2008Q1

REPORT INFORMATION
  Report Type: 
  Country: None (occurrence: None)
  Receive Date: 20080125
  Receipt Date: 20080124
  Transmission Date: 20080703
  Serious: Yes (Hospitalization)
  Sender: FDA-Public Use
  Company Number: MX-BRISTOL-MYERS SQUIBB COMPANY-13934377

PATIENT
  Age: 66 Year
  Sex: Female

DRUGS (6)
  1. BLINDED: ABATACEPT [Suspect]
     Indication: RHEUMATOID ARTHRITIS
     Route: 042
     Dates: start: 20050514
  2. BLINDED: PLACEBO [Suspect]
     Indication: RHEUMATOID ARTHRITIS
     Route: 042
     Dates: start: 20050514
  3. METHOTREXATE [Suspect]
     Indication: RHEUMATOID ARTHRITIS
     Dosage: THERAPY TO 03-OCT-2007, RESTARTED 25-OCT-07.
     Dates: start: 20030710
  4. CAPTOPRIL [Concomitant]
     Dates: start: 20050310
  5. DICLOFENAC [Concomitant]
     Dates: start: 20050310
  6. METHOTREXATE [Concomitant]
     Dates: start: 20071025

REACTIONS (1)
  - ANAEMIA [None]
